FAERS Safety Report 5286154-6 (Version None)
Quarter: 2007Q2

REPORT INFORMATION
  Report Type: 
  Country: None (occurrence: None)
  Receive Date: 20070404
  Receipt Date: 20070402
  Transmission Date: 20071010
  Serious: Yes (Death, Disabling, Other)
  Sender: FDA-Public Use
  Company Number: AU-BRISTOL-MYERS SQUIBB COMPANY-13736434

PATIENT
  Age: 26 Year
  Sex: Female

DRUGS (9)
  1. METHOTREXATE [Suspect]
     Indication: ACUTE LYMPHOCYTIC LEUKAEMIA
     Route: 037
  2. METHOTREXATE [Suspect]
     Route: 048
  3. METHOTREXATE [Suspect]
     Route: 042
  4. CYCLOPHOSPHAMIDE [Suspect]
     Indication: ACUTE LYMPHOCYTIC LEUKAEMIA
  5. VINCRISTINE SULFATE [Suspect]
     Indication: ACUTE LYMPHOCYTIC LEUKAEMIA
  6. DOXORUBICIN HCL [Suspect]
     Indication: ACUTE LYMPHOCYTIC LEUKAEMIA
  7. DEXAMETHASONE [Suspect]
     Indication: ACUTE LYMPHOCYTIC LEUKAEMIA
  8. CYTARABINE [Suspect]
     Indication: ACUTE LYMPHOCYTIC LEUKAEMIA
     Route: 037
  9. MERCAPTOPURINE [Concomitant]
     Indication: ACUTE LYMPHOCYTIC LEUKAEMIA
     Route: 048

REACTIONS (7)
  - ATROPHY [None]
  - LEUKAEMIA RECURRENT [None]
  - MALIGNANT NEOPLASM PROGRESSION [None]
  - MYELOPATHY [None]
  - OSTEOMYELITIS [None]
  - SEPSIS [None]
  - SPINAL CORD DISORDER [None]
